FAERS Safety Report 13227979 (Version 2)
Quarter: 2017Q1

REPORT INFORMATION
  Report Type: Report from Study
  Country: US (occurrence: US)
  Receive Date: 20170213
  Receipt Date: 20170329
  Transmission Date: 20170428
  Serious: Yes (Death, Hospitalization, Disabling, Other)
  Sender: FDA-Public Use
  Company Number: US-ACTELION-A-NJ2015-117530

PATIENT
  Age: 76 Year
  Sex: Female
  Weight: 86.17 kg

DRUGS (11)
  1. LEVOXYL [Concomitant]
     Active Substance: LEVOTHYROXINE SODIUM
     Dosage: 137 UNK, UNK
     Route: 048
  2. COATED ASPIRIN [Concomitant]
     Active Substance: ASPIRIN
     Dosage: 325 MG, UNK
  3. GABAPENTINE [Concomitant]
     Active Substance: GABAPENTIN
  4. POTASSIUM CHLORIDE. [Concomitant]
     Active Substance: POTASSIUM CHLORIDE
     Dosage: UNK
     Route: 048
  5. TRACLEER [Suspect]
     Active Substance: BOSENTAN
     Dosage: 125 MG, BID
     Route: 048
     Dates: start: 20090127
  6. LASIX [Concomitant]
     Active Substance: FUROSEMIDE
     Dosage: 80 MG, UNK
  7. CORGARD [Concomitant]
     Active Substance: NADOLOL
     Dosage: 80 MG, UNK
     Route: 048
  8. AMLODIPINE BESILATE [Concomitant]
     Active Substance: AMLODIPINE BESYLATE
     Dosage: 5 MG, UNK
  9. METRONIDAZOLE HYDROCHLORIDE [Concomitant]
     Active Substance: METRONIDAZOLE HYDROCHLORIDE
     Dosage: 37.5 UNK, UNK
  10. TRACLEER [Suspect]
     Active Substance: BOSENTAN
     Indication: PULMONARY ARTERIAL HYPERTENSION
     Dosage: 125 MG, BID
     Route: 048
     Dates: start: 2002
  11. IRON [Concomitant]
     Active Substance: IRON

REACTIONS (17)
  - Red blood cell count decreased [Unknown]
  - Dyspnoea [Unknown]
  - Transfusion [Unknown]
  - Swelling [Unknown]
  - Condition aggravated [Unknown]
  - Death [Fatal]
  - Hypotension [Unknown]
  - Chest pain [Unknown]
  - Fatigue [Unknown]
  - Cardiomegaly [Unknown]
  - Syncope [Unknown]
  - Product quality issue [Unknown]
  - Oedema peripheral [Unknown]
  - Anaemia [Unknown]
  - White blood cell count decreased [Unknown]
  - Dizziness [Unknown]
  - Feeling abnormal [Unknown]
